FAERS Safety Report 8522659-X (Version None)
Quarter: 2012Q3

REPORT INFORMATION
  Report Type: 
  Country: None (occurrence: None)
  Receive Date: 20120719
  Receipt Date: 20120717
  Transmission Date: 20120928
  Serious: No
  Sender: FDA-Public Use
  Company Number: US-PFIZER INC-2012172666

PATIENT
  Sex: Male

DRUGS (1)
  1. AMLODIPINE BESYLATE [Suspect]
     Dosage: 5 MG, UNK
     Dates: start: 20100101

REACTIONS (1)
  - OEDEMA PERIPHERAL [None]
